FAERS Safety Report 21858138 (Version 2)
Quarter: 2023Q1

REPORT INFORMATION
  Report Type: Spontaneous
  Country: DE (occurrence: DE)
  Receive Date: 20230113
  Receipt Date: 20230215
  Transmission Date: 20230418
  Serious: Yes (Other)
  Sender: FDA-Public Use
  Company Number: DE-002147023-NVSC2022DE259254

PATIENT
  Age: 40 Year
  Sex: Female

DRUGS (4)
  1. TASIGNA [Suspect]
     Active Substance: NILOTINIB
     Indication: Paternal exposure during pregnancy
     Dosage: EXPOSURE VIA PARTNER: 300 MG, BID (2 X 300 MG)
     Route: 050
  2. TASIGNA [Suspect]
     Active Substance: NILOTINIB
     Dosage: EXPOSURE VIA PARTNER: UNK (2-0-2)
     Route: 050
     Dates: start: 20201011
  3. ZINC [Concomitant]
     Active Substance: ZINC
     Indication: Paternal exposure during pregnancy
     Dosage: EXPOSURE VIA PARTNER: UNK
     Route: 065
  4. IRON [Concomitant]
     Active Substance: IRON
     Indication: Paternal exposure during pregnancy
     Dosage: EXPOSURE VIA PARTNER: UNK
     Route: 065

REACTIONS (2)
  - Premature delivery [Unknown]
  - Exposure via partner [Unknown]

NARRATIVE: CASE EVENT DATE: 20220101
